FAERS Safety Report 4341071-0 (Version None)
Quarter: 2004Q2

REPORT INFORMATION
  Report Type: 
  Country: None (occurrence: None)
  Receive Date: 20040413
  Receipt Date: 20040402
  Transmission Date: 20050107
  Serious: Yes (Hospitalization)
  Sender: FDA-Public Use
  Company Number: US-JNJFOC-20040400818

PATIENT
  Age: 47 Year
  Sex: Female

DRUGS (1)
  1. DURAGESIC [Suspect]
     Indication: PAIN
     Dosage: 100 UG/HR, 1 IN 72 HOUR, TRANSDERMAL
     Route: 062
     Dates: start: 20020101

REACTIONS (5)
  - ANXIETY [None]
  - CHEST PAIN [None]
  - HYPERHIDROSIS [None]
  - PERIPHERAL COLDNESS [None]
  - VERTIGO [None]
